FAERS Safety Report 5266949-5 (Version None)
Quarter: 2007Q1

REPORT INFORMATION
  Report Type: 
  Country: None (occurrence: None)
  Receive Date: 20070312
  Receipt Date: 20070301
  Transmission Date: 20070707
  Serious: Yes (Hospitalization)
  Sender: FDA-Public Use
  Company Number: MEDI-0005403

PATIENT
  Age: 57 Year
  Sex: Male
  Weight: 59.1491 kg

DRUGS (8)
  1. ETHYOL [Suspect]
     Indication: RADIOTHERAPY
     Dosage: 500 MG, 5 IN 5 D, SUBCUTANEOUS
     Route: 058
     Dates: start: 20070111, end: 20070122
  2. ETHYOL [Suspect]
     Indication: RADIOTHERAPY
     Dosage: 500 MG, 5 IN 5 D, SUBCUTANEOUS
     Route: 058
     Dates: start: 20070205, end: 20070205
  3. RADIATION THERAPY [Concomitant]
  4. ATIVAN [Concomitant]
  5. COMPAZINE [Concomitant]
  6. CISPLATIN [Concomitant]
  7. EMEND [Concomitant]
  8. DECADRON [Concomitant]

REACTIONS (20)
  - ACTIVATED PARTIAL THROMBOPLASTIN TIME PROLONGED [None]
  - BLOOD CALCIUM DECREASED [None]
  - BLOOD MAGNESIUM DECREASED [None]
  - BLOOD PHOSPHORUS DECREASED [None]
  - BLOOD POTASSIUM DECREASED [None]
  - BUNDLE BRANCH BLOCK RIGHT [None]
  - DEHYDRATION [None]
  - DIARRHOEA [None]
  - ELECTROLYTE IMBALANCE [None]
  - HAEMOGLOBIN DECREASED [None]
  - HYPOTENSION [None]
  - INTERNATIONAL NORMALISED RATIO INCREASED [None]
  - MYOCARDIAL INFARCTION [None]
  - MYOGLOBIN BLOOD INCREASED [None]
  - PAIN [None]
  - PLATELET COUNT DECREASED [None]
  - PROTHROMBIN TIME SHORTENED [None]
  - REFUSAL OF TREATMENT BY PATIENT [None]
  - RENAL FAILURE [None]
  - SEPTIC SHOCK [None]
